FAERS Safety Report 13122351 (Version 2)
Quarter: 2017Q1

REPORT INFORMATION
  Report Type: Report from Study
  Country: BG (occurrence: BG)
  Receive Date: 20170117
  Receipt Date: 20170130
  Transmission Date: 20170428
  Serious: Yes (Hospitalization)
  Sender: FDA-Public Use
  Company Number: BG-NOVOPROD-526251

PATIENT
  Age: 30 Year
  Sex: Male
  Weight: 87.8 kg

DRUGS (8)
  1. BLINDED IDEG PDS290 [Suspect]
     Active Substance: INSULIN DEGLUDEC
     Indication: TYPE 1 DIABETES MELLITUS
     Dosage: 36 U, QD
     Route: 058
     Dates: start: 20160722
  2. IDEG PDS290 [Suspect]
     Active Substance: INSULIN DEGLUDEC
     Indication: TYPE 1 DIABETES MELLITUS
     Dosage: 24 U, QD
     Route: 058
     Dates: start: 20160722
  3. LANTUS [Concomitant]
     Active Substance: INSULIN GLARGINE
     Dosage: 12 U, QD
     Route: 065
     Dates: start: 201206, end: 20160515
  4. HUMALOG [Concomitant]
     Active Substance: INSULIN LISPRO
     Dosage: 30 U, QD
     Route: 065
     Dates: start: 201301, end: 20160515
  5. BLINDED FIASP 3ML PDS290 [Suspect]
     Active Substance: INSULIN ASPART
     Indication: TYPE 1 DIABETES MELLITUS
     Dosage: 36 U, QD
     Route: 058
     Dates: start: 20160722
  6. BLINDED NO DRUG GIVEN [Suspect]
     Active Substance: INVESTIGATIONAL PRODUCT
     Indication: TYPE 1 DIABETES MELLITUS
     Dosage: 36 U, QD
     Route: 058
     Dates: start: 20160722
  7. NOVORAPID [Suspect]
     Active Substance: INSULIN ASPART
     Indication: TYPE 1 DIABETES MELLITUS
     Dosage: 36 U, QD
     Route: 058
     Dates: start: 20160722
  8. BLINDED UNKNOWN [Suspect]
     Active Substance: INVESTIGATIONAL PRODUCT
     Indication: TYPE 1 DIABETES MELLITUS
     Dosage: 36 U, QD
     Route: 058
     Dates: start: 20160722

REACTIONS (1)
  - Diabetic metabolic decompensation [Recovered/Resolved]

NARRATIVE: CASE EVENT DATE: 20170106
